FAERS Safety Report 11050857 (Version 1)
Quarter: 2015Q2

REPORT INFORMATION
  Report Type: Other
  Country: US (occurrence: US)
  Receive Date: 20150421
  Receipt Date: 20150421
  Transmission Date: 20150821
  Serious: Yes (Other)
  Sender: FDA-Public Use
  Company Number: US-FRI-1000075884

PATIENT
  Age: 22 Year
  Sex: Female

DRUGS (3)
  1. VILAZODONE [Suspect]
     Active Substance: VILAZODONE
     Dosage: 20 MG
  2. VILAZODONE [Suspect]
     Active Substance: VILAZODONE
     Dosage: 40 MG
  3. VILAZODONE [Suspect]
     Active Substance: VILAZODONE
     Indication: DEPRESSION
     Dosage: 10 MG

REACTIONS (1)
  - Seizure [Recovered/Resolved]
